FAERS Safety Report 8295887-9 (Version None)
Quarter: 2012Q2

REPORT INFORMATION
  Report Type: 
  Country: None (occurrence: None)
  Receive Date: 20120417
  Receipt Date: 20120417
  Transmission Date: 20120825
  Serious: No
  Sender: FDA-Public Use
  Company Number: None

PATIENT
  Age: 61 Year
  Sex: Male
  Weight: 102.7 kg

DRUGS (2)
  1. ERTAPENEM [Suspect]
     Dosage: EVERY DAY SQ
     Route: 058
     Dates: start: 20120201, end: 20120228
  2. VANCOMYCIN [Suspect]
     Dosage: MG BID SQ
     Route: 058
     Dates: start: 20120201, end: 20120223

REACTIONS (2)
  - LEUKOPENIA [None]
  - NEUTROPENIA [None]
